FAERS Safety Report 5321565-1 (Version None)
Quarter: 2007Q2

REPORT INFORMATION
  Report Type: 
  Country: None (occurrence: None)
  Receive Date: 20070220
  Receipt Date: 20061103
  Transmission Date: 20071010
  Serious: No
  Sender: FDA-Public Use
  Company Number: TPA2006A00841

PATIENT
  Age: 45 Year
  Sex: Female
  Weight: 68.0396 kg

DRUGS (9)
  1. ROZEREM [Suspect]
     Indication: SLEEP DISORDER
     Dosage: 4 MG 1/2 TAB ONCE PER ORAL
     Route: 048
     Dates: start: 20060306, end: 20060306
  2. MELLARIL [Concomitant]
  3. SEROQUEL [Concomitant]
  4. WELLBUTRIN SR [Concomitant]
  5. LAMICTAL [Concomitant]
  6. TOPAMAX [Concomitant]
  7. ABILIFY [Concomitant]
  8. CYMBALTA [Concomitant]
  9. HEPARIN [Concomitant]

REACTIONS (2)
  - BURNING SENSATION [None]
  - UNDERDOSE [None]
